FAERS Safety Report 13513905 (Version 1)
Quarter: 2017Q2

REPORT INFORMATION
  Report Type: Report from Study
  Country: US (occurrence: US)
  Receive Date: 20170504
  Receipt Date: 20170504
  Transmission Date: 20170830
  Serious: Yes (Hospitalization, Other)
  Sender: FDA-Public Use
  Company Number: US-GILEAD-2017-0270781

PATIENT
  Age: 60 Year
  Sex: Female

DRUGS (2)
  1. RANOLAZINE. [Suspect]
     Active Substance: RANOLAZINE
     Indication: ANGINA PECTORIS
     Dosage: 500 MG, UNK
     Route: 048
  2. RANOLAZINE. [Suspect]
     Active Substance: RANOLAZINE
     Indication: ANGINA PECTORIS

REACTIONS (5)
  - Coma [Unknown]
  - Myocardial infarction [Unknown]
  - Memory impairment [Not Recovered/Not Resolved]
  - Aneurysm [Unknown]
  - Amnesia [Not Recovered/Not Resolved]
